FAERS Safety Report 15557534 (Version 1)
Quarter: 2018Q4

REPORT INFORMATION
  Report Type: Spontaneous
  Country: JP (occurrence: JP)
  Receive Date: 20181027
  Receipt Date: 20181027
  Transmission Date: 20190205
  Serious: Yes (Other)
  Sender: FDA-Public Use
  Company Number: JP-ROCHE-2205483

PATIENT

DRUGS (2)
  1. EYLEA [Concomitant]
     Active Substance: AFLIBERCEPT
  2. LUCENTIS [Suspect]
     Active Substance: RANIBIZUMAB
     Indication: DIABETIC RETINAL OEDEMA
     Dosage: UNK
     Route: 031

REACTIONS (1)
  - Diabetic retinal oedema [Unknown]

NARRATIVE: CASE EVENT DATE: 201803
